FAERS Safety Report 16593083 (Version 1)
Quarter: 2019Q3

REPORT INFORMATION
  Report Type: Report from Study
  Country: US (occurrence: US)
  Receive Date: 20190718
  Receipt Date: 20190718
  Transmission Date: 20191004
  Serious: Yes (Other)
  Sender: FDA-Public Use
  Company Number: US-PFIZER INC-2019302387

PATIENT

DRUGS (1)
  1. VITAMIN A [Suspect]
     Active Substance: VITAMIN A
     Dosage: UNK

REACTIONS (2)
  - Chronic hepatic failure [Unknown]
  - Toxicity to various agents [Unknown]
